FAERS Safety Report 10416542 (Version 3)
Quarter: 2014Q4

REPORT INFORMATION
  Report Type: Spontaneous
  Country: AU (occurrence: AU)
  Receive Date: 20140828
  Receipt Date: 20141024
  Transmission Date: 20150528
  Serious: Yes (Hospitalization)
  Sender: FDA-Public Use
  Company Number: AU-NAPPMUNDI-GBR-2014-0020110

PATIENT
  Sex: Male

DRUGS (1)
  1. OXYCONTIN [Suspect]
     Active Substance: OXYCODONE HYDROCHLORIDE
     Indication: PRODUCT USED FOR UNKNOWN INDICATION
     Route: 042

REACTIONS (4)
  - Peripheral ischaemia [Recovered/Resolved with Sequelae]
  - Gangrene [Unknown]
  - Sensory disturbance [Recovered/Resolved with Sequelae]
  - Drug abuse [Unknown]

NARRATIVE: CASE EVENT DATE: 201405
